FAERS Safety Report 5483133-0 (Version None)
Quarter: 2007Q4

REPORT INFORMATION
  Report Type: 
  Country: None (occurrence: None)
  Receive Date: 20071005
  Receipt Date: 20070921
  Transmission Date: 20080405
  Serious: Yes (Death)
  Sender: FDA-Public Use
  Company Number: A-CH2007-17466

PATIENT
  Age: 73 Year
  Sex: 0

DRUGS (3)
  1. TRACLEER [Suspect]
     Indication: PULMONARY HYPERTENSION
     Dosage: 125 MG, BID, 62.5 MG, BID, ORAL
     Route: 048
     Dates: start: 20060810, end: 20060906
  2. TRACLEER [Suspect]
     Indication: PULMONARY HYPERTENSION
     Dosage: 125 MG, BID, 62.5 MG, BID, ORAL
     Route: 048
     Dates: start: 20060907, end: 20070628
  3. SILDENAFIL [Concomitant]

REACTIONS (1)
  - DEATH [None]
